FAERS Safety Report 5209133-3 (Version None)
Quarter: 2007Q1

REPORT INFORMATION
  Report Type: 
  Country: None (occurrence: None)
  Receive Date: 20070116
  Receipt Date: 20070104
  Transmission Date: 20070707
  Serious: Yes (Other)
  Sender: FDA-Public Use
  Company Number: US-ROCHE-477307

PATIENT
  Sex: Female

DRUGS (2)
  1. ACCUTANE [Suspect]
     Indication: DRUG USE FOR UNKNOWN INDICATION
     Route: 065
     Dates: start: 20001115, end: 20010315
  2. ACCUTANE [Suspect]
     Route: 065
     Dates: start: 20011115, end: 20020415

REACTIONS (2)
  - IRRITABLE BOWEL SYNDROME [None]
  - PROCTITIS [None]
